FAERS Safety Report 8215548-1 (Version None)
Quarter: 2012Q1

REPORT INFORMATION
  Report Type: 
  Country: None (occurrence: None)
  Receive Date: 20120316
  Receipt Date: 20120307
  Transmission Date: 20120608
  Serious: Yes (Death)
  Sender: FDA-Public Use
  Company Number: JP-ROCHE-1048596

PATIENT
  Age: 82 Year
  Sex: Female

DRUGS (2)
  1. ACTIVASE [Suspect]
     Indication: EMBOLIC STROKE
     Route: 042
     Dates: start: 20100915, end: 20100915
  2. RADICUT [Suspect]
     Indication: EMBOLIC STROKE
     Dates: start: 20100915, end: 20100921

REACTIONS (1)
  - HAEMORRHAGIC CEREBRAL INFARCTION [None]
